FAERS Safety Report 11414017 (Version 1)
Quarter: 2015Q3

REPORT INFORMATION
  Report Type: Spontaneous
  Country: NO (occurrence: NO)
  Receive Date: 20150824
  Receipt Date: 20150824
  Transmission Date: 20151125
  Serious: Yes (Life-Threatening, Hospitalization, Disabling, Other)
  Sender: FDA-Public Use
  Company Number: NO-BRISTOL-MYERS SQUIBB COMPANY-BMS-2015-054843

PATIENT
  Sex: Male
  Weight: 110 kg

DRUGS (2)
  1. ABILIFY [Suspect]
     Active Substance: ARIPIPRAZOLE
     Indication: SCHIZOPHRENIA
     Dosage: UNK
     Route: 065
     Dates: start: 2006, end: 201409
  2. ZYPREXA [Suspect]
     Active Substance: OLANZAPINE
     Indication: SCHIZOPHRENIA, PARANOID TYPE
     Dosage: UNK
     Route: 065
     Dates: start: 2006

REACTIONS (6)
  - Mental impairment [Recovered/Resolved with Sequelae]
  - Indifference [Recovering/Resolving]
  - Diabetes mellitus inadequate control [Unknown]
  - Limb operation [Unknown]
  - Coronary artery bypass [Recovered/Resolved with Sequelae]
  - Osteomyelitis [Unknown]

NARRATIVE: CASE EVENT DATE: 2000
